FAERS Safety Report 18602217 (Version 4)
Quarter: 2022Q1

REPORT INFORMATION
  Report Type: Report from Study
  Country: US (occurrence: None)
  Receive Date: 20201210
  Receipt Date: 20220215
  Transmission Date: 20220423
  Serious: Yes (Hospitalization)
  Sender: FDA-Public Use
  Company Number: US-EISAI MEDICAL RESEARCH-EC-2020-085080

PATIENT
  Age: 60 Year
  Sex: Female

DRUGS (23)
  1. LENVIMA [Suspect]
     Active Substance: LENVATINIB
     Indication: Endometrial cancer
     Route: 048
     Dates: start: 201911, end: 202012
  2. LENVIMA [Suspect]
     Active Substance: LENVATINIB
     Route: 048
     Dates: start: 202012, end: 2020
  3. LENVIMA [Suspect]
     Active Substance: LENVATINIB
     Route: 048
     Dates: start: 2020
  4. ONDANSETRON [Concomitant]
     Active Substance: ONDANSETRON
  5. PROCHLORPERAZINE [Concomitant]
     Active Substance: PROCHLORPERAZINE
  6. OXYCODONE [Concomitant]
     Active Substance: OXYCODONE
  7. ATORVASTATIN [Concomitant]
     Active Substance: ATORVASTATIN
  8. MORPHINE [Concomitant]
     Active Substance: MORPHINE
  9. AMLODIPINE [Concomitant]
     Active Substance: AMLODIPINE BESYLATE
  10. CORICIDIN [Concomitant]
     Dosage: 2-15-500 MG TB CP SEQ
  11. ASPIRIN [Concomitant]
     Active Substance: ASPIRIN
  12. BLACK ELDERBERRY [Concomitant]
  13. CALCIUM CARBONATE [Concomitant]
     Active Substance: CALCIUM CARBONATE
  14. MINERALS\VITAMINS [Concomitant]
     Active Substance: MINERALS\VITAMINS
  15. IBUPROFEN [Concomitant]
     Active Substance: IBUPROFEN
  16. KEYTRUDA [Concomitant]
     Active Substance: PEMBROLIZUMAB
  17. VITAMIN A [Concomitant]
     Active Substance: VITAMIN A
  18. VITAMIN B COMPLEX [Concomitant]
     Active Substance: CYANOCOBALAMIN\DEXPANTHENOL\NIACINAMIDE\PYRIDOXINE HYDROCHLORIDE\RIBOFLAVIN 5^-PHOSPHATE SODIUM\THIA
  19. VITAMIN C [Concomitant]
     Active Substance: ASCORBIC ACID
  20. VITAMIN D2 [Concomitant]
     Active Substance: ERGOCALCIFEROL
  21. VITAMIN 3 [Concomitant]
  22. ZINC [Concomitant]
     Active Substance: ZINC
  23. MAGNESIUM [Concomitant]
     Active Substance: MAGNESIUM

REACTIONS (5)
  - Hypertension [Not Recovered/Not Resolved]
  - Chest pain [Unknown]
  - Blood cholesterol increased [Unknown]
  - Headache [Unknown]
  - Dry mouth [Unknown]

NARRATIVE: CASE EVENT DATE: 20201201
